FAERS Safety Report 5064765-0 (Version None)
Quarter: 2006Q3

REPORT INFORMATION
  Report Type: 
  Country: None (occurrence: None)
  Receive Date: 20060725
  Receipt Date: 20060712
  Transmission Date: 20061208
  Serious: Yes (Hospitalization)
  Sender: FDA-Public Use
  Company Number: 2006PV017390

PATIENT
  Age: 62 Year
  Sex: Female
  Weight: 105.2345 kg

DRUGS (18)
  1. BYETTA [Suspect]
     Indication: DIABETES MELLITUS NON-INSULIN-DEPENDENT
     Dosage: SEE IMAGE
     Route: 058
     Dates: start: 20060101, end: 20060501
  2. BYETTA [Suspect]
     Indication: DIABETES MELLITUS NON-INSULIN-DEPENDENT
     Dosage: SEE IMAGE
     Route: 058
     Dates: start: 20060501, end: 20060710
  3. BYETTA [Suspect]
     Indication: DIABETES MELLITUS NON-INSULIN-DEPENDENT
     Dosage: SEE IMAGE
     Route: 058
     Dates: start: 20060701
  4. METFORMIN [Concomitant]
  5. AVANDIA [Concomitant]
  6. AMARYL [Concomitant]
  7. CHROMOGEN [Concomitant]
  8. HYOSCYAMINE [Concomitant]
  9. CYCLOVENENCAPRINE [Concomitant]
  10. ADVAIR DISKUS 100/50 [Concomitant]
  11. POTASSIUM [Concomitant]
  12. LASIX [Concomitant]
  13. MULTIVITAMIN [Concomitant]
  14. CALCIUM D [Concomitant]
  15. VITAMIN D [Concomitant]
  16. FLONASE [Concomitant]
  17. ALBUTEROL SPIROS [Concomitant]
  18. VYTORIN [Concomitant]

REACTIONS (4)
  - CONDITION AGGRAVATED [None]
  - PULMONARY HYPERTENSION [None]
  - WEIGHT DECREASED [None]
  - WHEEZING [None]
